FAERS Safety Report 23205682 (Version 1)
Quarter: 2023Q4

REPORT INFORMATION
  Report Type: Spontaneous
  Country: GB (occurrence: GB)
  Receive Date: 20231120
  Receipt Date: 20231120
  Transmission Date: 20240110
  Serious: Yes (Other)
  Sender: FDA-Public Use
  Company Number: GB-JNJFOC-20231133205

PATIENT
  Sex: Female

DRUGS (1)
  1. SUDAFED [Suspect]
     Active Substance: PSEUDOEPHEDRINE HYDROCHLORIDE
     Indication: Rhinitis
     Route: 065

REACTIONS (3)
  - Drug dependence [Recovered/Resolved]
  - Exposure during pregnancy [Unknown]
  - Nasal obstruction [Unknown]
